FAERS Safety Report 12277050 (Version 1)
Quarter: 2016Q2

REPORT INFORMATION
  Report Type: Spontaneous
  Country: JP (occurrence: JP)
  Receive Date: 20160418
  Receipt Date: 20160418
  Transmission Date: 20160815
  Serious: Yes (Other)
  Sender: FDA-Public Use
  Company Number: JP-CIPLA LTD.-2016JP03757

PATIENT

DRUGS (2)
  1. NEDAPLATIN [Suspect]
     Active Substance: NEDAPLATIN
     Indication: CERVIX CARCINOMA
     Dosage: 80 MG/M2, ON DAY 1 OF 21 DAY CYCLE
     Route: 042
  2. IRINOTECAN [Suspect]
     Active Substance: IRINOTECAN
     Indication: CERVIX CARCINOMA
     Dosage: 60 MG/M2, ON DAYS 1 AND 8 OF 21 DAY CYCLE
     Route: 042

REACTIONS (1)
  - Neurotoxicity [Unknown]
